FAERS Safety Report 21525353 (Version 12)
Quarter: 2024Q1

REPORT INFORMATION
  Report Type: Report from Study
  Country: PE (occurrence: PE)
  Receive Date: 20221030
  Receipt Date: 20240222
  Transmission Date: 20240410
  Serious: Yes (Other)
  Sender: FDA-Public Use
  Company Number: PE-NOVARTISPH-NVSC2022PE242600

PATIENT
  Sex: Female

DRUGS (6)
  1. KISQALI [Suspect]
     Active Substance: RIBOCICLIB
     Indication: Breast cancer metastatic
     Dosage: 2 DOSAGE FORM (DAILY)
     Route: 065
  2. KISQALI [Suspect]
     Active Substance: RIBOCICLIB
     Dosage: 400 MG, QD
     Route: 048
     Dates: start: 20221017
  3. KISQALI [Suspect]
     Active Substance: RIBOCICLIB
     Dosage: 1 DOSAGE FORM, QD (1 TABLET DAILY)
     Route: 065
  4. LETROZOLE [Suspect]
     Active Substance: LETROZOLE
     Indication: Product used for unknown indication
     Dosage: UNK
     Route: 065
  5. TRIPTORELIN [Concomitant]
     Active Substance: TRIPTORELIN
     Indication: Product used for unknown indication
     Dosage: UNK
     Route: 065
  6. OMEPRAZOLE [Concomitant]
     Active Substance: OMEPRAZOLE
     Indication: Product used for unknown indication
     Dosage: UNK
     Route: 065

REACTIONS (45)
  - Arrhythmia [Unknown]
  - Vocal cord disorder [Unknown]
  - Gastritis [Unknown]
  - Insomnia [Unknown]
  - Throat irritation [Unknown]
  - Cardiac disorder [Unknown]
  - Panic reaction [Unknown]
  - Anxiety [Unknown]
  - Decreased immune responsiveness [Unknown]
  - Acne [Unknown]
  - Skin wound [Unknown]
  - Throat tightness [Unknown]
  - Nasal congestion [Unknown]
  - Abdominal discomfort [Unknown]
  - Spinal pain [Unknown]
  - Renal pain [Unknown]
  - Musculoskeletal discomfort [Unknown]
  - Arthropathy [Unknown]
  - Pain [Unknown]
  - Bone demineralisation [Unknown]
  - Tonsillar disorder [Unknown]
  - Viral infection [Unknown]
  - Pain in extremity [Unknown]
  - Oral herpes [Unknown]
  - Memory impairment [Unknown]
  - Tachycardia [Unknown]
  - Malaise [Unknown]
  - Arthralgia [Unknown]
  - Influenza [Unknown]
  - Pharyngitis [Unknown]
  - Pyrexia [Unknown]
  - Dry mouth [Unknown]
  - Headache [Unknown]
  - Dyspnoea [Unknown]
  - Cough [Unknown]
  - Fatigue [Unknown]
  - Stomatitis [Unknown]
  - Asthenia [Unknown]
  - Nasopharyngitis [Unknown]
  - Chronic gastritis [Unknown]
  - Bone disorder [Unknown]
  - Gingival pain [Unknown]
  - Nausea [Unknown]
  - Diarrhoea [Unknown]
  - Alopecia [Unknown]

NARRATIVE: CASE EVENT DATE: 20230101
